FAERS Safety Report 7785646-5 (Version None)
Quarter: 2011Q3

REPORT INFORMATION
  Report Type: 
  Country: None (occurrence: None)
  Receive Date: 20110929
  Receipt Date: 20110929
  Transmission Date: 20111222
  Serious: Yes (Other)
  Sender: FDA-Public Use
  Company Number: None

PATIENT

DRUGS (2)
  1. INVEGA [Concomitant]
     Dosage: 1 TABLET
     Route: 048
     Dates: start: 20100914, end: 20110919
  2. VISTARIL [Suspect]
     Indication: INSOMNIA
     Dosage: 1 AS NECESSARY
     Route: 048
     Dates: start: 20110914, end: 20110916

REACTIONS (4)
  - MALAISE [None]
  - ABDOMINAL PAIN UPPER [None]
  - VOMITING [None]
  - MIGRAINE [None]
